FAERS Safety Report 5228468-1 (Version None)
Quarter: 2007Q1

REPORT INFORMATION
  Report Type: 
  Country: None (occurrence: None)
  Receive Date: 20070131
  Receipt Date: 20070131
  Transmission Date: 20070707
  Serious: No
  Sender: FDA-Public Use
  Company Number: None

PATIENT
  Age: 69 Year
  Sex: Male
  Weight: 83.0083 kg

DRUGS (8)
  1. ACETAMINOPHEN AND HYDROCODONE BITARTRATE [Suspect]
     Indication: ANALGESIC EFFECT
     Dosage: 1 - 2 TABS Q4HRS PRN PO
     Route: 048
     Dates: start: 20061214, end: 20061218
  2. LOPRESSOR [Concomitant]
  3. NORVASC [Concomitant]
  4. RESTORIL [Concomitant]
  5. TYLENOL [Concomitant]
  6. ZOFRAN [Concomitant]
  7. DOCUSATE [Concomitant]
  8. MILK OF MAG [Concomitant]

REACTIONS (1)
  - LIP SWELLING [None]
